FAERS Safety Report 19078276 (Version 1)
Quarter: 2021Q1

REPORT INFORMATION
  Report Type: Spontaneous
  Country: US (occurrence: US)
  Receive Date: 20210331
  Receipt Date: 20210331
  Transmission Date: 20210420
  Serious: No
  Sender: FDA-Public Use
  Company Number: US-TEVA-2021-US-1894877

PATIENT
  Age: 7 Year
  Sex: Male

DRUGS (1)
  1. CEFALEXIN [Suspect]
     Active Substance: CEPHALEXIN
     Indication: OSTEOMYELITIS
     Dosage: FORM OF ADMIN: ORAL SUSPENSION
     Route: 048

REACTIONS (2)
  - Abdominal pain upper [Unknown]
  - Product storage error [Unknown]

NARRATIVE: CASE EVENT DATE: 202103
